FAERS Safety Report 15580729 (Version 1)
Quarter: 2018Q4

REPORT INFORMATION
  Report Type: Spontaneous
  Country: US (occurrence: US)
  Receive Date: 20181103
  Receipt Date: 20181103
  Transmission Date: 20190205
  Serious: Yes (Other)
  Sender: FDA-Public Use
  Company Number: None

PATIENT
  Age: 47 Year
  Sex: Female
  Weight: 63 kg

DRUGS (5)
  1. VITAMIN B12 [Concomitant]
     Active Substance: CYANOCOBALAMIN
  2. SUMATRIPTAN INJECTION USP (AUTOINJECTOR) 4MG/0.5ML [Suspect]
     Active Substance: SUMATRIPTAN
     Indication: MIGRAINE
     Dosage: ?          QUANTITY:1 INJECTION(S);?
     Route: 058
     Dates: start: 20181031, end: 20181031
  3. MAGNESIUM [Concomitant]
     Active Substance: MAGNESIUM
  4. ESTRADIOL. [Concomitant]
     Active Substance: ESTRADIOL
  5. GLUCOSAMINE [Concomitant]
     Active Substance: GLUCOSAMINE

REACTIONS (12)
  - Hyperhidrosis [None]
  - Dizziness [None]
  - Dehydration [None]
  - Flushing [None]
  - Nausea [None]
  - Product substitution issue [None]
  - Impaired work ability [None]
  - Dyspnoea [None]
  - Vomiting [None]
  - Diarrhoea [None]
  - Chest discomfort [None]
  - Hypophagia [None]

NARRATIVE: CASE EVENT DATE: 20181031
